FAERS Safety Report 15835985 (Version 1)
Quarter: 2019Q1

REPORT INFORMATION
  Report Type: Spontaneous
  Country: US (occurrence: US)
  Receive Date: 20190117
  Receipt Date: 20190117
  Transmission Date: 20190417
  Serious: No
  Sender: FDA-Public Use
  Company Number: US-SAREPTA THERAPEUTICS, INC-SRP-000161-2018

PATIENT
  Age: 8 Year
  Sex: Male
  Weight: 15.5 kg

DRUGS (1)
  1. EXONDYS 51 [Suspect]
     Active Substance: ETEPLIRSEN
     Indication: DUCHENNE MUSCULAR DYSTROPHY
     Dosage: 475 MG, WEEKLY
     Route: 042
     Dates: end: 20180922

REACTIONS (3)
  - Blood pressure increased [Recovered/Resolved]
  - Chest pain [Recovered/Resolved]
  - Heart rate increased [Recovered/Resolved]

NARRATIVE: CASE EVENT DATE: 20180922
